FAERS Safety Report 9311189 (Version 1)
Quarter: 2013Q1

REPORT INFORMATION
  Report Type: Spontaneous
  Country: US (occurrence: None)
  Receive Date: 20130211
  Receipt Date: 20130211
  Transmission Date: 20140127
  Serious: No
  Sender: FDA-Public Use
  Company Number: 2012-00205

PATIENT
  Age: 82 Year
  Sex: Male

DRUGS (2)
  1. ZICAM COLD REMEDY RAPIDMELTS [Suspect]
     Indication: NASOPHARYNGITIS
     Dosage: 3 TABS DAILY
     Dates: start: 20121218, end: 20121219
  2. UNKNOWN NON STEROIDAL ANTI-INFLAMMATORY DRUGS [Concomitant]

REACTIONS (1)
  - Ageusia [None]
